FAERS Safety Report 4685175-1 (Version None)
Quarter: 2005Q2

REPORT INFORMATION
  Report Type: 
  Country: None (occurrence: None)
  Receive Date: 20050608
  Receipt Date: 20050519
  Transmission Date: 20051028
  Serious: Yes (Death, Hospitalization)
  Sender: FDA-Public Use
  Company Number: 200511697FR

PATIENT
  Age: 73 Year
  Sex: Male

DRUGS (6)
  1. IKOREL [Suspect]
     Route: 048
     Dates: end: 20040820
  2. LASILIX [Suspect]
     Route: 048
     Dates: end: 20040820
  3. IMOVANE [Suspect]
     Route: 048
     Dates: end: 20040820
  4. PREVISCAN [Suspect]
     Route: 048
     Dates: end: 20040820
  5. ALLOPURINOL [Suspect]
     Route: 048
     Dates: end: 20040820
  6. LEVOTHYROX [Suspect]
     Route: 048
     Dates: end: 20040820

REACTIONS (10)
  - COMA [None]
  - HAEMATOMA [None]
  - HAEMODIALYSIS [None]
  - HYPOVOLAEMIA [None]
  - LUNG DISORDER [None]
  - PSEUDOMONAS INFECTION [None]
  - RENAL FAILURE ACUTE [None]
  - SEPSIS [None]
  - SEPTIC SHOCK [None]
  - THROMBOCYTOPENIA [None]
